FAERS Safety Report 20690073 (Version 1)
Quarter: 2022Q2

REPORT INFORMATION
  Report Type: Spontaneous
  Country: US (occurrence: US)
  Receive Date: 20220408
  Receipt Date: 20220408
  Transmission Date: 20220721
  Serious: Yes (Other)
  Sender: FDA-Public Use
  Company Number: US-PFIZER INC-202200475377

PATIENT
  Age: 38 Year
  Sex: Female
  Weight: 97.07 kg

DRUGS (2)
  1. TORISEL [Suspect]
     Active Substance: TEMSIROLIMUS
     Indication: Uterine cancer
     Dosage: 16.5 G, (INFUSION ONCE EVERY 28 DAY)
     Dates: start: 20220308
  2. SOLU-MEDROL [Concomitant]
     Active Substance: METHYLPREDNISOLONE SODIUM SUCCINATE
     Dosage: UNK

REACTIONS (4)
  - Rash [Recovering/Resolving]
  - Swelling face [Recovering/Resolving]
  - Pharyngeal swelling [Recovering/Resolving]
  - Off label use [Unknown]

NARRATIVE: CASE EVENT DATE: 20220308
